FAERS Safety Report 8437754-3 (Version None)
Quarter: 2012Q2

REPORT INFORMATION
  Report Type: 
  Country: None (occurrence: None)
  Receive Date: 20120614
  Receipt Date: 20120426
  Transmission Date: 20120825
  Serious: No
  Sender: FDA-Public Use
  Company Number: US-GLAXOSMITHKLINE-A0975633A

PATIENT
  Age: 71 Year
  Sex: Female

DRUGS (2)
  1. NICORETTE [Suspect]
     Dates: start: 20120101
  2. NICORETTE [Suspect]
     Indication: SMOKING CESSATION THERAPY
     Dates: start: 20120401

REACTIONS (5)
  - MALAISE [None]
  - TONGUE COATED [None]
  - PRODUCT QUALITY ISSUE [None]
  - TOOTH DEPOSIT [None]
  - DYSGEUSIA [None]
